FAERS Safety Report 14259017 (Version 1)
Quarter: 2017Q4

REPORT INFORMATION
  Report Type: Report from Study
  Country: BR (occurrence: BR)
  Receive Date: 20171207
  Receipt Date: 20171207
  Transmission Date: 20180321
  Serious: Yes (Other)
  Sender: FDA-Public Use
  Company Number: PHHY2017BR171526

PATIENT
  Age: 66 Year
  Sex: Female
  Weight: 73 kg

DRUGS (8)
  1. VALSARTAN. [Suspect]
     Active Substance: VALSARTAN
     Indication: HYPERTENSION
     Dosage: 320 MG, QD
     Route: 048
     Dates: start: 20170801
  2. HYDROCHLOROTHIAZIDE SANDOZ [Suspect]
     Active Substance: HYDROCHLOROTHIAZIDE
     Dosage: 0.5 DF (12 MG), QD
     Route: 048
  3. CLONAZEPAM. [Concomitant]
     Active Substance: CLONAZEPAM
     Indication: SLEEP DISORDER
  4. DIOVAN TRIPLE [Suspect]
     Active Substance: AMLODIPINE BESYLATE\HYDROCHLOROTHIAZIDE\VALSARTAN
     Indication: HYPERTENSION
     Dosage: 1 DF (AMLODIPINE 5 MG AND HYDROCHLOROTHIAZIDE 12.5 MG AND VALSARTAN 160 MG), QD (FROM 15 YEARS AGO)
     Route: 048
     Dates: end: 20170801
  5. HYDROCHLOROTHIAZIDE SANDOZ [Suspect]
     Active Substance: HYDROCHLOROTHIAZIDE
     Indication: HYPERTENSION
     Dosage: 12.5 MG, QD (FROM 6 MONTHS AGO)
     Route: 048
     Dates: start: 20170801
  6. FLUOXETINE [Concomitant]
     Active Substance: FLUOXETINE HYDROCHLORIDE
     Indication: DEPRESSION
     Dosage: 1 DF, QD (FOR 20 DAYS)
     Route: 048
  7. AMLODIPINE [Suspect]
     Active Substance: AMLODIPINE BESYLATE
     Indication: HYPERTENSION
     Dosage: 10 MG, QD (FOR 6 YEARS)
     Route: 048
  8. CLONAZEPAM. [Concomitant]
     Active Substance: CLONAZEPAM
     Indication: DEPRESSION
     Dosage: 1 DF, QD (FOR 2 YEARS)
     Route: 048

REACTIONS (23)
  - Headache [Recovered/Resolved]
  - Confusional state [Unknown]
  - Concomitant disease aggravated [Unknown]
  - Dyspepsia [Unknown]
  - Memory impairment [Unknown]
  - Haemorrhage [Unknown]
  - Toothache [Recovered/Resolved]
  - Hypermetropia [Unknown]
  - Blood pressure increased [Unknown]
  - Weight decreased [Recovered/Resolved]
  - Pain [Recovered/Resolved]
  - Cystitis [Unknown]
  - Cataract [Unknown]
  - Hypercholesterolaemia [Unknown]
  - Bladder pain [Unknown]
  - Middle insomnia [Unknown]
  - Vomiting [Recovered/Resolved]
  - Visual impairment [Unknown]
  - Cholelithiasis [Unknown]
  - Wrong technique in product usage process [Not Recovered/Not Resolved]
  - Malaise [Recovered/Resolved]
  - Feeling abnormal [Unknown]
  - Bladder injury [Unknown]

NARRATIVE: CASE EVENT DATE: 201708
